FAERS Safety Report 10765773 (Version 1)
Quarter: 2015Q1

REPORT INFORMATION
  Report Type: Spontaneous
  Country: US (occurrence: US)
  Receive Date: 20150205
  Receipt Date: 20150205
  Transmission Date: 20150721
  Serious: No
  Sender: FDA-Public Use
  Company Number: US-BAYER-2015-017218

PATIENT
  Age: 85 Year
  Sex: Female
  Weight: 52 kg

DRUGS (1)
  1. ALEVE PM [Suspect]
     Active Substance: DIPHENHYDRAMINE HYDROCHLORIDE\NAPROXEN SODIUM
     Indication: SLEEP DISORDER THERAPY
     Dosage: 1 DF, QD
     Route: 048
     Dates: start: 20150101, end: 20150202

REACTIONS (2)
  - Medication error [None]
  - Incorrect drug administration duration [None]

NARRATIVE: CASE EVENT DATE: 20150101
